FAERS Safety Report 5142951-9 (Version None)
Quarter: 2006Q4

REPORT INFORMATION
  Report Type: 
  Country: None (occurrence: None)
  Receive Date: 20061030
  Receipt Date: 20061023
  Transmission Date: 20070319
  Serious: Yes (Death)
  Sender: FDA-Public Use
  Company Number: TCI2006A04366

PATIENT
  Age: 75 Year
  Sex: Male

DRUGS (7)
  1. ACTOS [Suspect]
     Indication: DIABETES MELLITUS NON-INSULIN-DEPENDENT
     Dosage: 15 MG (15 MG, 1 IN 1 D)
     Route: 048
     Dates: start: 20060913, end: 20060928
  2. PANALDINE (TICLOPIDINE HYROCHLORIDE) [Suspect]
     Dosage: 200 MG (100 MG - 100 MG, 2 IN 1 D)
     Route: 048
     Dates: start: 20060827, end: 20060928
  3. LANSOPRAZOLE [Concomitant]
  4. ASPIRIN [Concomitant]
  5. LIVALO (ITAVASTATIN CALCIUM) [Suspect]
     Dosage: 2 MG (2 MG, 1 IN 1 D)
     Route: 048
     Dates: start: 20060827, end: 20060928
  6. DIOVAN [Concomitant]
  7. SIGMART (NICORANDIL) [Concomitant]

REACTIONS (15)
  - ALANINE AMINOTRANSFERASE INCREASED [None]
  - ARRHYTHMIA [None]
  - ASPARTATE AMINOTRANSFERASE INCREASED [None]
  - BLOOD CREATINE PHOSPHOKINASE INCREASED [None]
  - BLOOD GLUCOSE DECREASED [None]
  - BLOOD LACTATE DEHYDROGENASE INCREASED [None]
  - BLOOD POTASSIUM INCREASED [None]
  - BLOOD SODIUM INCREASED [None]
  - CARDIAC FAILURE ACUTE [None]
  - CARDIOMEGALY [None]
  - ELECTROCARDIOGRAM T WAVE INVERSION [None]
  - HIGH DENSITY LIPOPROTEIN DECREASED [None]
  - PULMONARY CONGESTION [None]
  - SUDDEN DEATH [None]
  - VENTRICULAR EXTRASYSTOLES [None]
